FAERS Safety Report 4639923-7 (Version None)
Quarter: 2005Q2

REPORT INFORMATION
  Report Type: 
  Country: None (occurrence: None)
  Receive Date: 20050415
  Receipt Date: 20050404
  Transmission Date: 20051028
  Serious: Yes (Other)
  Sender: FDA-Public Use
  Company Number: 2005055529

PATIENT
  Age: 69 Year
  Sex: Male

DRUGS (2)
  1. VIAGRA [Suspect]
     Indication: ERECTILE DYSFUNCTION
     Dosage: (50 MG)
  2. APOMORPHINE HYDROCHLORIDE (APOMORPHINE HYDROCHLORIDE) [Suspect]
     Indication: ERECTILE DYSFUNCTION

REACTIONS (4)
  - FEELING ABNORMAL [None]
  - OPTIC ISCHAEMIC NEUROPATHY [None]
  - VISUAL DISTURBANCE [None]
  - VISUAL FIELD DEFECT [None]
